FAERS Safety Report 10882799 (Version 1)
Quarter: 2015Q1

REPORT INFORMATION
  Report Type: Spontaneous
  Country: US (occurrence: US)
  Receive Date: 20150303
  Receipt Date: 20150303
  Transmission Date: 20150721
  Serious: Yes (Other)
  Sender: FDA-Public Use
  Company Number: US-BAYER-2015-028867

PATIENT

DRUGS (1)
  1. CIPRO [Suspect]
     Active Substance: CIPROFLOXACIN HYDROCHLORIDE

REACTIONS (19)
  - Vitreous floaters [None]
  - Depression [None]
  - Bedridden [None]
  - Apoptosis [None]
  - Emotional disorder [None]
  - Mitochondrial cytopathy [None]
  - Injury [None]
  - Soft tissue disorder [None]
  - Crepitations [None]
  - Insomnia [None]
  - Facial spasm [None]
  - Oxygen saturation decreased [None]
  - Hypersensitivity [None]
  - Trigeminal neuralgia [None]
  - Anxiety [None]
  - Fatigue [None]
  - Tinnitus [None]
  - Pain [None]
  - Arthralgia [None]
